FAERS Safety Report 15418270 (Version 2)
Quarter: 2018Q4

REPORT INFORMATION
  Report Type: Spontaneous
  Country: US (occurrence: US)
  Receive Date: 20180924
  Receipt Date: 20181029
  Transmission Date: 20190204
  Serious: Yes (Disabling, Other)
  Sender: FDA-Public Use
  Company Number: US-OTSUKA-2018_019353

PATIENT
  Sex: Male

DRUGS (6)
  1. ABILIFY [Suspect]
     Active Substance: ARIPIPRAZOLE
     Indication: POST-TRAUMATIC STRESS DISORDER
  2. LAMOTRIGINE. [Concomitant]
     Active Substance: LAMOTRIGINE
     Indication: AFFECTIVE DISORDER
     Dosage: 150 MG, BID
     Route: 048
  3. CLONAZEPAM. [Concomitant]
     Active Substance: CLONAZEPAM
     Dosage: 1 MG, BID
     Route: 048
  4. CLONAZEPAM. [Concomitant]
     Active Substance: CLONAZEPAM
     Indication: ANXIETY
     Dosage: 0.5 MG, BID
     Route: 048
  5. ABILIFY [Suspect]
     Active Substance: ARIPIPRAZOLE
     Indication: MAJOR DEPRESSION
  6. ABILIFY [Suspect]
     Active Substance: ARIPIPRAZOLE
     Indication: BIPOLAR DISORDER
     Dosage: 5 MG, QD AT BEDTIME
     Route: 065
     Dates: start: 201409, end: 2018

REACTIONS (10)
  - Injury [Unknown]
  - Economic problem [Unknown]
  - Product use in unapproved indication [Unknown]
  - Obsessive-compulsive disorder [Unknown]
  - Suicidal ideation [Unknown]
  - Bankruptcy [Unknown]
  - Disability [Unknown]
  - Emotional distress [Unknown]
  - Neuropsychiatric symptoms [Unknown]
  - Gambling disorder [Not Recovered/Not Resolved]
